FAERS Safety Report 7399104-3 (Version None)
Quarter: 2011Q1

REPORT INFORMATION
  Report Type: 
  Country: None (occurrence: None)
  Receive Date: 20110328
  Receipt Date: 20110321
  Transmission Date: 20110831
  Serious: Yes (Hospitalization)
  Sender: FDA-Public Use
  Company Number: 201110043

PATIENT
  Age: 32 Year
  Sex: Female

DRUGS (2)
  1. LIORESAL [Suspect]
     Indication: MUSCLE SPASTICITY
     Dosage: 100 MCG, DAILY, INTRATHECAL
     Route: 039
  2. DILAUDID [Concomitant]

REACTIONS (7)
  - NEOPLASM [None]
  - VOMITING [None]
  - DRUG WITHDRAWAL SYNDROME [None]
  - MUSCLE SPASMS [None]
  - HEADACHE [None]
  - SKIN MASS [None]
  - TREATMENT NONCOMPLIANCE [None]
